FAERS Safety Report 4665643-9 (Version None)
Quarter: 2005Q2

REPORT INFORMATION
  Report Type: 
  Country: None (occurrence: None)
  Receive Date: 20050517
  Receipt Date: 20050502
  Transmission Date: 20051028
  Serious: Yes (Life-Threatening, Hospitalization)
  Sender: FDA-Public Use
  Company Number: 214449

PATIENT
  Age: 66 Year

DRUGS (2)
  1. AVASTIN [Suspect]
     Indication: RENAL CELL CARCINOMA STAGE UNSPECIFIED
     Dosage: 10 MG/KG, DAYS 1+15 Q4W, INTRAVENOUS
     Route: 042
     Dates: start: 20050221, end: 20050321
  2. INTERFERON ALFA-2B (INTERFERON ALFA-2B) PWDR + SOLVENT, INFUSION SOLN, [Suspect]
     Indication: RENAL CELL CARCINOMA STAGE UNSPECIFIED
     Dosage: 9 MIU, TID, SUBCUTANEOUS
     Route: 058
     Dates: start: 20050221, end: 20050418

REACTIONS (7)
  - BLOOD CALCIUM DECREASED [None]
  - DIALYSIS [None]
  - FATIGUE [None]
  - OEDEMA PERIPHERAL [None]
  - PRURITUS [None]
  - RENAL FAILURE [None]
  - WEIGHT INCREASED [None]
